FAERS Safety Report 7723792-2 (Version None)
Quarter: 2011Q3

REPORT INFORMATION
  Report Type: 
  Country: None (occurrence: None)
  Receive Date: 20110826
  Receipt Date: 20110816
  Transmission Date: 20111222
  Serious: Yes (Hospitalization, Other)
  Sender: FDA-Public Use
  Company Number: US-2011-10376

PATIENT
  Age: 60 Year
  Sex: Female

DRUGS (3)
  1. BUSULFAN [Suspect]
     Indication: STEM CELL TRANSPLANT
     Dosage: 46 MG MILLIGRAM(S), 46 MG MILLIGRAM(S), DAILY DOSE, INTRAVENOUS
     Route: 042
     Dates: start: 20110502, end: 20110502
  2. CYCLOPHOSPHAMIDE [Concomitant]
  3. ETOPOSIDE [Concomitant]

REACTIONS (26)
  - NAUSEA [None]
  - APOPTOSIS [None]
  - HYPOPHAGIA [None]
  - ACUTE GRAFT VERSUS HOST DISEASE [None]
  - PETECHIAE [None]
  - PAPULE [None]
  - DYSURIA [None]
  - PAIN OF SKIN [None]
  - CYTOMEGALOVIRUS VIRAEMIA [None]
  - EXCORIATION [None]
  - VOMITING [None]
  - TOXICITY TO VARIOUS AGENTS [None]
  - HAEMATURIA [None]
  - BLISTER [None]
  - OEDEMA [None]
  - DIARRHOEA [None]
  - FATIGUE [None]
  - PYREXIA [None]
  - STEM CELL TRANSPLANT [None]
  - VIRAL SKIN INFECTION [None]
  - SKIN TOXICITY [None]
  - HYPOTENSION [None]
  - EXFOLIATIVE RASH [None]
  - ERYTHEMA [None]
  - PAIN IN EXTREMITY [None]
  - DEHYDRATION [None]
